FAERS Safety Report 16970887 (Version 1)
Quarter: 2019Q4

REPORT INFORMATION
  Report Type: Spontaneous
  Country: US (occurrence: US)
  Receive Date: 20191028
  Receipt Date: 20191028
  Transmission Date: 20200122
  Serious: Yes (Other)
  Sender: FDA-Public Use
  Company Number: None

PATIENT
  Age: 55 Year
  Sex: Female
  Weight: 49.91 kg

DRUGS (1)
  1. IMATINIB. [Suspect]
     Active Substance: IMATINIB MESYLATE
     Indication: MYELOID LEUKAEMIA
     Route: 048
     Dates: start: 20190822, end: 20191026

REACTIONS (4)
  - Ear pain [None]
  - Nausea [None]
  - Arthralgia [None]
  - Eczema [None]

NARRATIVE: CASE EVENT DATE: 20191028
